FAERS Safety Report 23123064 (Version 3)
Quarter: 2025Q1

REPORT INFORMATION
  Report Type: Spontaneous
  Country: US (occurrence: US)
  Receive Date: 20231030
  Receipt Date: 20250206
  Transmission Date: 20250408
  Serious: No
  Sender: GLAXOSMITHKLINE
  Company Number: US-GSK-US2023145862

PATIENT
  Age: 80 Year
  Sex: Female

DRUGS (1)
  1. NUCALA [Suspect]
     Active Substance: MEPOLIZUMAB
     Indication: Asthma
     Dates: start: 202301

REACTIONS (3)
  - COVID-19 [Recovering/Resolving]
  - Product dose omission issue [Unknown]
  - Wheezing [Unknown]

NARRATIVE: CASE EVENT DATE: 20240109
